FAERS Safety Report 5781055-9 (Version None)
Quarter: 2008Q2

REPORT INFORMATION
  Report Type: 
  Country: None (occurrence: None)
  Receive Date: 20080620
  Receipt Date: 20080610
  Transmission Date: 20081010
  Serious: Yes (Other)
  Sender: FDA-Public Use
  Company Number: US-PFIZER INC-2008049655

PATIENT
  Sex: Female
  Weight: 71.7 kg

DRUGS (2)
  1. NEURONTIN [Suspect]
     Indication: SLEEP DISORDER
     Dosage: TEXT:QD EVERY DAY
     Dates: start: 20080324, end: 20080601
  2. ANTIHYPERTENSIVES [Concomitant]

REACTIONS (4)
  - AMNESIA [None]
  - HYPERTENSION [None]
  - IMPAIRED DRIVING ABILITY [None]
  - VISION BLURRED [None]
